FAERS Safety Report 5775335-0 (Version None)
Quarter: 2008Q2

REPORT INFORMATION
  Report Type: 
  Country: None (occurrence: None)
  Receive Date: 20080616
  Receipt Date: 20080616
  Transmission Date: 20081010
  Serious: Yes (Hospitalization)
  Sender: FDA-Public Use
  Company Number: None

PATIENT
  Age: 42 Year
  Sex: Female
  Weight: 58.9676 kg

DRUGS (1)
  1. BOTOX [Suspect]

REACTIONS (5)
  - ANXIETY [None]
  - ARRHYTHMIA [None]
  - FATIGUE [None]
  - PALPITATIONS [None]
  - RESPIRATION ABNORMAL [None]
